FAERS Safety Report 9224153 (Version 1)
Quarter: 2013Q2

REPORT INFORMATION
  Report Type: Spontaneous
  Country: US (occurrence: US)
  Receive Date: 20130411
  Receipt Date: 20130411
  Transmission Date: 20140414
  Serious: No
  Sender: FDA-Public Use
  Company Number: US-PFIZER INC-2013109705

PATIENT
  Age: 89 Year
  Sex: Female
  Weight: 45.35 kg

DRUGS (3)
  1. TOVIAZ [Suspect]
     Dosage: 8 MG, 1X/DAY
     Dates: start: 201303, end: 20130403
  2. DETROL [Suspect]
     Dosage: UNK
  3. INDERAL [Concomitant]
     Indication: MIGRAINE
     Dosage: UNK

REACTIONS (5)
  - Malaise [Unknown]
  - Headache [Not Recovered/Not Resolved]
  - Abdominal discomfort [Not Recovered/Not Resolved]
  - Constipation [Not Recovered/Not Resolved]
  - Drug ineffective [Unknown]
